FAERS Safety Report 8687169 (Version 4)
Quarter: 2012Q4

REPORT INFORMATION
  Report Type: 
  Country: US (occurrence: US)
  Receive Date: 20120727
  Receipt Date: 20120928
  Transmission Date: 20130627
  Serious: Yes (Death, Hospitalization, Other)
  Sender: FDA-Public Use
  Company Number: US-PFIZER INC-2012180008

PATIENT
  Age: 63 Year
  Sex: Male
  Weight: 72.5 kg

DRUGS (2)
  1. SUTENT [Suspect]
     Indication: RENAL CELL CARCINOMA
     Dosage: UNK
     Dates: start: 201203, end: 2012
  2. SUTENT [Suspect]
     Dosage: UNK
     Dates: start: 201204, end: 20120710

REACTIONS (11)
  - Disease progression [Fatal]
  - Renal cell carcinoma [Fatal]
  - Hepatic cirrhosis [Not Recovered/Not Resolved]
  - Abasia [Not Recovered/Not Resolved]
  - Diarrhoea [Not Recovered/Not Resolved]
  - Asthenia [Not Recovered/Not Resolved]
  - Blister [Not Recovered/Not Resolved]
  - Contusion [Not Recovered/Not Resolved]
  - Dysphagia [Not Recovered/Not Resolved]
  - Speech disorder [Not Recovered/Not Resolved]
  - Weight decreased [Not Recovered/Not Resolved]
